FAERS Safety Report 6980386-4 (Version None)
Quarter: 2010Q3

REPORT INFORMATION
  Report Type: 
  Country: None (occurrence: None)
  Receive Date: 20100914
  Receipt Date: 20100903
  Transmission Date: 20110219
  Serious: Yes (Hospitalization)
  Sender: FDA-Public Use
  Company Number: FR-KINGPHARMUSA00001-K201001123

PATIENT
  Age: 73 Year
  Sex: Female

DRUGS (16)
  1. ALTACE [Suspect]
     Dosage: UNK
  2. ENOXAPARIN SODIUM [Suspect]
     Indication: THROMBOSIS PROPHYLAXIS
     Dosage: UNK
     Route: 051
     Dates: start: 20100523, end: 20100528
  3. ENOXAPARIN SODIUM [Suspect]
     Dosage: UNK
     Dates: start: 20100811, end: 20100818
  4. APIXABAN [Suspect]
     Indication: THROMBOSIS PROPHYLAXIS
     Dosage: 2 DF, QD
     Route: 048
     Dates: start: 20100523, end: 20100608
  5. APIXABAN [Suspect]
     Dosage: 1 DF, QD
     Route: 048
     Dates: start: 20100609, end: 20100621
  6. IPRATROPIUM BROMIDE [Concomitant]
     Dosage: UNK
     Dates: start: 20051114
  7. VENTOLIN [Concomitant]
     Dosage: UNK
     Dates: start: 20100523
  8. NOVONORM [Concomitant]
     Dosage: UNK
     Dates: start: 20100523
  9. ELATROLET [Concomitant]
     Dosage: UNK
     Dates: start: 20100524
  10. FOLIC ACID [Concomitant]
     Dosage: UNK
     Dates: start: 20100526
  11. PRILOSEC [Concomitant]
     Dosage: UNK
     Dates: start: 20100523
  12. SIMVASTATIN [Concomitant]
     Dosage: UNK
     Dates: start: 20100727
  13. ACETYLCYSTEINE [Concomitant]
     Dosage: UNK
     Dates: start: 20100727
  14. CALCIUM CITRATE [Concomitant]
  15. BEZALIP [Concomitant]
     Dosage: UNK
     Dates: start: 20100728, end: 20100810
  16. GLUCOPHAGE [Concomitant]
     Dosage: UNK
     Dates: start: 20100729, end: 20100812

REACTIONS (4)
  - HYPERKALAEMIA [None]
  - OXYGEN SATURATION DECREASED [None]
  - PULMONARY EMBOLISM [None]
  - TACHYCARDIA [None]
